FAERS Safety Report 11465816 (Version 2)
Quarter: 2015Q4

REPORT INFORMATION
  Report Type: Spontaneous
  Country: US (occurrence: US)
  Receive Date: 20150907
  Receipt Date: 20151012
  Transmission Date: 20160304
  Serious: No
  Sender: FDA-Public Use
  Company Number: US-BAYER-2015-415048

PATIENT
  Age: 69 Year
  Sex: Male
  Weight: 58.95 kg

DRUGS (1)
  1. ALEVE PM [Suspect]
     Active Substance: DIPHENHYDRAMINE HYDROCHLORIDE\NAPROXEN SODIUM
     Indication: ARTHRITIS
     Dosage: 2 DF, QD
     Route: 048
     Dates: start: 20150830, end: 20150902

REACTIONS (2)
  - Abdominal pain upper [None]
  - Drug ineffective [Unknown]

NARRATIVE: CASE EVENT DATE: 20150830
